FAERS Safety Report 4468344-5 (Version None)
Quarter: 2004Q4

REPORT INFORMATION
  Report Type: 
  Country: None (occurrence: None)
  Receive Date: 20041007
  Receipt Date: 20040623
  Transmission Date: 20050328
  Serious: Yes (Other)
  Sender: FDA-Public Use
  Company Number: PHEH2004US06865

PATIENT
  Age: 72 Year
  Sex: Male
  Weight: 96 kg

DRUGS (6)
  1. ZOMETA [Suspect]
     Indication: PROSTATE CANCER METASTATIC
     Dosage: 4 MG, QMO
     Route: 042
     Dates: start: 20021201, end: 20040526
  2. PHOSPHO-SODA [Suspect]
     Indication: COLONOSCOPY
     Dates: start: 20040609
  3. NEURONTIN [Concomitant]
     Indication: NEUROPATHY
     Dosage: 600 MG, QID
     Route: 048
  4. LIDODERM [Concomitant]
  5. THEO-24 [Concomitant]
     Indication: CHRONIC OBSTRUCTIVE AIRWAYS DISEASE
     Dosage: 20 MG, BID
     Route: 048
  6. VIOXX [Concomitant]
     Indication: BONE PAIN
     Dosage: 12.5 MG, QD
     Route: 048

REACTIONS (3)
  - COLONOSCOPY [None]
  - HYPOCALCAEMIA [None]
  - TETANY [None]
